FAERS Safety Report 19985091 (Version 1)
Quarter: 2021Q4

REPORT INFORMATION
  Report Type: Spontaneous
  Country: US (occurrence: US)
  Receive Date: 20211021
  Receipt Date: 20211021
  Transmission Date: 20220303
  Serious: No
  Sender: FDA-Public Use
  Company Number: US-MAYNE PHARMA-2020MYN000542

PATIENT

DRUGS (2)
  1. SORILUX [Suspect]
     Active Substance: CALCIPOTRIENE
     Indication: Psoriasis
     Dosage: UNK % AS DIRECTED
     Route: 061
     Dates: start: 20200904, end: 202009
  2. SORILUX [Suspect]
     Active Substance: CALCIPOTRIENE
     Dosage: UNK

REACTIONS (2)
  - Drug ineffective [Unknown]
  - Medication error [Unknown]
